FAERS Safety Report 17848839 (Version 1)
Quarter: 2020Q2

REPORT INFORMATION
  Report Type: Report from Study
  Country: GB (occurrence: GB)
  Receive Date: 20200602
  Receipt Date: 20200602
  Transmission Date: 20200714
  Serious: Yes (Hospitalization, Other)
  Sender: FDA-Public Use
  Company Number: NVSC2020GB151048

PATIENT
  Sex: Male

DRUGS (1)
  1. HYRIMOZ [Suspect]
     Active Substance: ADALIMUMAB-ADAZ
     Indication: ANKYLOSING SPONDYLITIS
     Dosage: 40 MG, EVERY OTHER WEEK
     Route: 065

REACTIONS (5)
  - Pneumonia [Unknown]
  - Product dose omission [Unknown]
  - Pulmonary thrombosis [Unknown]
  - Pneumothorax [Unknown]
  - Lower respiratory tract infection [Unknown]
